FAERS Safety Report 12633126 (Version 2)
Quarter: 2016Q3

REPORT INFORMATION
  Report Type: Spontaneous
  Country: US (occurrence: US)
  Receive Date: 20160808
  Receipt Date: 20160808
  Transmission Date: 20161109
  Serious: No
  Sender: FDA-Public Use
  Company Number: US-BEH-2016058511

PATIENT
  Sex: Female
  Weight: 54 kg

DRUGS (19)
  1. POLY-VISOL [Concomitant]
  2. EMLA [Concomitant]
     Active Substance: LIDOCAINE\PRILOCAINE
  3. MIRAPEX [Concomitant]
     Active Substance: PRAMIPEXOLE DIHYDROCHLORIDE
  4. DOMEBORO [Concomitant]
     Active Substance: ALUMINUM ACETATE
  5. DIPHENHYDRAMINE. [Concomitant]
     Active Substance: DIPHENHYDRAMINE
  6. IBUPROFEN. [Concomitant]
     Active Substance: IBUPROFEN
  7. CORN STARCH [Concomitant]
     Active Substance: STARCH, CORN
  8. CHLOR-TRIMETON [Concomitant]
     Active Substance: CHLORPHENIRAMINE MALEATE
  9. ALPHA LIPOIC ACID [Concomitant]
     Active Substance: .ALPHA.-LIPOIC ACID
  10. RIBOFLAVIN [Concomitant]
     Active Substance: RIBOFLAVIN
  11. QVAR [Concomitant]
     Active Substance: BECLOMETHASONE DIPROPIONATE
  12. ACETAMINOPHEN. [Concomitant]
     Active Substance: ACETAMINOPHEN
  13. NASONEX [Concomitant]
     Active Substance: MOMETASONE FUROATE
  14. SIMETHICONE (DIMETHICONE) [Concomitant]
     Active Substance: DIMETHICONE
  15. HIZENTRA [Suspect]
     Active Substance: HUMAN IMMUNOGLOBULIN G
     Indication: HYPOGAMMAGLOBULINAEMIA
     Route: 058
     Dates: start: 20151119
  16. EPIPEN [Concomitant]
     Active Substance: EPINEPHRINE
  17. COENZYME [Concomitant]
     Active Substance: UBIDECARENONE
  18. LIDOCAINE. [Concomitant]
     Active Substance: LIDOCAINE
  19. MIRALAX [Concomitant]
     Active Substance: POLYETHYLENE GLYCOL 3350

REACTIONS (1)
  - Sinusitis [Unknown]
